FAERS Safety Report 9631061 (Version 1)
Quarter: 2013Q4

REPORT INFORMATION
  Report Type: Spontaneous
  Country: GB (occurrence: GB)
  Receive Date: 20131018
  Receipt Date: 20131018
  Transmission Date: 20140711
  Serious: Yes (Other)
  Sender: FDA-Public Use
  Company Number: GB-PFIZER INC-2013292100

PATIENT
  Age: 18 Year
  Sex: Male

DRUGS (7)
  1. PHENYTOIN [Suspect]
     Indication: EPILEPSY
     Dosage: 400 MG, DAILY
  2. PHENYTOIN [Suspect]
     Dosage: 600 MG, DAILY
  3. PHENYTOIN [Suspect]
     Dosage: 400 MG, DAILY
  4. PHENOBARBITONE [Suspect]
     Dosage: UNK
  5. PRIMIDONE [Suspect]
     Indication: EPILEPSY
     Dosage: 750 MG, DAILY
  6. DIAZEPAM [Suspect]
     Indication: EPILEPSY
     Dosage: 20 MG, DAILY
  7. CARBAMAZEPINE [Suspect]
     Indication: EPILEPSY
     Dosage: 200 MG, DAILY

REACTIONS (8)
  - Toxicity to various agents [Recovered/Resolved]
  - Anticonvulsant drug level above therapeutic [Unknown]
  - Somnolence [Recovered/Resolved]
  - Ataxia [Recovered/Resolved]
  - Dysarthria [Recovered/Resolved]
  - Dystonia [Recovered/Resolved]
  - Chorea [Recovered/Resolved]
  - Gingival hypertrophy [Unknown]
